FAERS Safety Report 9244841 (Version 1)
Quarter: 2013Q1

REPORT INFORMATION
  Report Type: Spontaneous
  Country: US (occurrence: None)
  Receive Date: 20121130
  Receipt Date: 20121130
  Transmission Date: 20140127
  Serious: No
  Sender: FDA-Public Use
  Company Number: 2012CP000099

PATIENT
  Age: 68 Year
  Sex: 0

DRUGS (2)
  1. OFIRMEV [Suspect]
     Indication: PAIN
     Route: 042
  2. CLINDAMYCIN [Suspect]
     Route: 042
     Dates: start: 20120821

REACTIONS (2)
  - Tachycardia [None]
  - Hypotension [None]
